FAERS Safety Report 4507604-6 (Version None)
Quarter: 2004Q4

REPORT INFORMATION
  Report Type: 
  Country: None (occurrence: None)
  Receive Date: 20040928
  Receipt Date: 20040823
  Transmission Date: 20050328
  Serious: Yes (Hospitalization)
  Sender: FDA-Public Use
  Company Number: 04P-163-0271234-00

PATIENT
  Age: 68 Year
  Sex: Female

DRUGS (3)
  1. HUMIRA [Suspect]
     Indication: RHEUMATOID ARTHRITIS
     Dosage: 40 MG , 1 IN 2 WK,  SUBCUTANEOUS
     Route: 058
     Dates: end: 20040701
  2. GOLD [Concomitant]
  3. PREDNISONE [Concomitant]

REACTIONS (2)
  - MYOCARDIAL INFARCTION [None]
  - SKIN ULCER [None]
